FAERS Safety Report 14572828 (Version 1)
Quarter: 2018Q1

REPORT INFORMATION
  Report Type: Spontaneous
  Country: US (occurrence: US)
  Receive Date: 20180222
  Receipt Date: 20180222
  Transmission Date: 20180509
  Serious: Yes (Death, Life-Threatening, Hospitalization)
  Sender: FDA-Public Use
  Company Number: None

PATIENT
  Age: 15 Month
  Sex: Male
  Weight: 79.7 kg

DRUGS (3)
  1. DAUNORUBICIN [Concomitant]
     Active Substance: DAUNORUBICIN
  2. MYLOTARG [Suspect]
     Active Substance: GEMTUZUMAB OZOGAMICIN
     Indication: ACUTE MYELOID LEUKAEMIA
     Dosage: ?          OTHER FREQUENCY:Q72H X 3 DOSES;?
     Route: 041
     Dates: start: 20180117, end: 20180123
  3. CYTARABINE. [Concomitant]
     Active Substance: CYTARABINE

REACTIONS (2)
  - Drug dispensing error [None]
  - Incorrect dose administered [None]

NARRATIVE: CASE EVENT DATE: 20180128
